FAERS Safety Report 18207540 (Version 1)
Quarter: 2020Q3

REPORT INFORMATION
  Report Type: Spontaneous
  Country: US (occurrence: US)
  Receive Date: 20200828
  Receipt Date: 20200828
  Transmission Date: 20201103
  Serious: Yes (Other)
  Sender: FDA-Public Use
  Company Number: None

PATIENT
  Sex: Female

DRUGS (6)
  1. FLUOCIN ACET SOL [Concomitant]
  2. NEORAL [Concomitant]
     Active Substance: CYCLOSPORINE
  3. CLOTRIMAZOLE. [Concomitant]
     Active Substance: CLOTRIMAZOLE
  4. JADENU [Suspect]
     Active Substance: DEFERASIROX
     Indication: APLASIA PURE RED CELL
     Route: 048
     Dates: start: 20190104
  5. SULFATRIM PD [Concomitant]
  6. VORIZONAZOLE [Concomitant]

REACTIONS (2)
  - Bone marrow transplant [None]
  - Therapy interrupted [None]
